FAERS Safety Report 5840259-7 (Version None)
Quarter: 2008Q3

REPORT INFORMATION
  Report Type: 
  Country: None (occurrence: None)
  Receive Date: 20080811
  Receipt Date: 20080801
  Transmission Date: 20090109
  Serious: Yes (Hospitalization)
  Sender: FDA-Public Use
  Company Number: GB-ABBOTT-08P-167-0450610-00

PATIENT
  Sex: Male
  Weight: 111 kg

DRUGS (10)
  1. HUMIRA [Suspect]
     Indication: RHEUMATOID ARTHRITIS
     Route: 058
     Dates: start: 20070914
  2. SULFADIAZINE [Concomitant]
     Indication: DRUG USE FOR UNKNOWN INDICATION
  3. ATENOLOL [Concomitant]
     Indication: DRUG USE FOR UNKNOWN INDICATION
  4. ACETAMINOPHEN W/ CODEINE [Concomitant]
     Indication: DRUG USE FOR UNKNOWN INDICATION
  5. DOXAZOSIN MESYLATE [Concomitant]
     Indication: DRUG USE FOR UNKNOWN INDICATION
  6. FOLIC ACID [Concomitant]
     Indication: DRUG USE FOR UNKNOWN INDICATION
  7. FUROSEMIDE [Concomitant]
     Indication: DRUG USE FOR UNKNOWN INDICATION
  8. SIMVASTATIN [Concomitant]
     Indication: DRUG USE FOR UNKNOWN INDICATION
  9. DICLOFENAC SODIUM [Concomitant]
     Indication: DRUG USE FOR UNKNOWN INDICATION
  10. SULPHARALAZINE [Concomitant]
     Indication: DRUG USE FOR UNKNOWN INDICATION

REACTIONS (5)
  - ACCIDENTAL EXPOSURE [None]
  - GOITRE [None]
  - OSTEOLYSIS [None]
  - PNEUMONIA [None]
  - RHEUMATOID ARTHRITIS [None]
